FAERS Safety Report 13851228 (Version 1)
Quarter: 2017Q3

REPORT INFORMATION
  Report Type: Spontaneous
  Country: US (occurrence: US)
  Receive Date: 20170809
  Receipt Date: 20170809
  Transmission Date: 20171127
  Serious: Yes (Hospitalization)
  Sender: FDA-Public Use
  Company Number: US-BEH-2017082631

PATIENT
  Age: 8 Year
  Sex: Male
  Weight: 23.13 kg

DRUGS (11)
  1. LOSARTAN. [Concomitant]
     Active Substance: LOSARTAN
  2. SILDENAFIL. [Concomitant]
     Active Substance: SILDENAFIL
  3. EPIPEN [Concomitant]
     Active Substance: EPINEPHRINE
  4. LASIX [Concomitant]
     Active Substance: FUROSEMIDE
  5. BUDESONIDE. [Concomitant]
     Active Substance: BUDESONIDE
  6. SPIRONOLACTONE. [Concomitant]
     Active Substance: SPIRONOLACTONE
  7. COREG [Concomitant]
     Active Substance: CARVEDILOL
  8. HIZENTRA [Suspect]
     Active Substance: HUMAN IMMUNOGLOBULIN G
     Indication: HYPOGAMMAGLOBULINAEMIA
     Dosage: 10 G, QW
     Route: 058
     Dates: start: 20170711
  9. ASPIRIN. [Concomitant]
     Active Substance: ASPIRIN
  10. CALCIUM [Concomitant]
     Active Substance: CALCIUM
  11. MAGNESIUM OXIDE. [Concomitant]
     Active Substance: MAGNESIUM OXIDE

REACTIONS (1)
  - Hospitalisation [Unknown]

NARRATIVE: CASE EVENT DATE: 201707
